FAERS Safety Report 7668552-6 (Version None)
Quarter: 2011Q3

REPORT INFORMATION
  Report Type: 
  Country: None (occurrence: None)
  Receive Date: 20110803
  Receipt Date: 20110726
  Transmission Date: 20111222
  Serious: Yes (Hospitalization, Other)
  Sender: FDA-Public Use
  Company Number: ACO_26079_2011

PATIENT
  Age: 69 Year
  Sex: Female
  Weight: 61.2 kg

DRUGS (7)
  1. BACLOFEN [Concomitant]
  2. CITALOPRAM HYDROBROMIDE [Concomitant]
  3. AMANTADINE HCL [Concomitant]
  4. NEURONTIN [Concomitant]
  5. ASPIRIN [Concomitant]
  6. AMPYRA [Suspect]
     Indication: GAIT DISTURBANCE
     Dosage: 10 MG, BID, ORAL
     Route: 048
     Dates: start: 20110723, end: 20110724
  7. MULTI-VITAMIN [Concomitant]

REACTIONS (4)
  - CONVULSION [None]
  - FALL [None]
  - URINARY TRACT INFECTION [None]
  - UNRESPONSIVE TO STIMULI [None]
